FAERS Safety Report 6583368-X (Version None)
Quarter: 2010Q1

REPORT INFORMATION
  Report Type: 
  Country: None (occurrence: None)
  Receive Date: 20100216
  Receipt Date: 20100209
  Transmission Date: 20100710
  Serious: Yes (Death)
  Sender: FDA-Public Use
  Company Number: GXKR2010IT01561

PATIENT
  Age: 59 Year
  Sex: Male

DRUGS (2)
  1. CEFTRIAXONE [Suspect]
     Route: 023
  2. FLUID/ELECTROLYTE REPLACEMENT THERAPY [Concomitant]

REACTIONS (7)
  - ANAPHYLACTIC SHOCK [None]
  - BRONCHOSPASM [None]
  - DYSPNOEA [None]
  - ENDOTRACHEAL INTUBATION [None]
  - PRURITUS GENERALISED [None]
  - RESTLESSNESS [None]
  - RESUSCITATION [None]
